FAERS Safety Report 8118587-4 (Version None)
Quarter: 2012Q1

REPORT INFORMATION
  Report Type: 
  Country: None (occurrence: None)
  Receive Date: 20120202
  Receipt Date: 20120119
  Transmission Date: 20120608
  Serious: Yes (Hospitalization, Other)
  Sender: FDA-Public Use
  Company Number: 2012MA000944

PATIENT
  Sex: Female

DRUGS (9)
  1. NAPROXEN (ALEVE) [Concomitant]
  2. GLUCAGON [Concomitant]
  3. PROPRANOLOL [Concomitant]
  4. ATROPINE [Concomitant]
  5. VICODIN [Concomitant]
  6. DIGOXIN [Suspect]
     Dosage: 0.25 MG; QD; PO
     Route: 048
     Dates: start: 20070625, end: 20080401
  7. LIPITOR [Concomitant]
  8. DIGIBIND [Concomitant]
  9. OMEPRAZOLE [Concomitant]

REACTIONS (27)
  - ASTHENIA [None]
  - BRADYARRHYTHMIA [None]
  - CHEST PAIN [None]
  - NODAL RHYTHM [None]
  - SEPSIS [None]
  - OEDEMA [None]
  - DIZZINESS [None]
  - ATRIAL FIBRILLATION [None]
  - DEPRESSION [None]
  - OSTEOARTHRITIS [None]
  - PALPITATIONS [None]
  - SICK SINUS SYNDROME [None]
  - ELECTROLYTE IMBALANCE [None]
  - TOXICITY TO VARIOUS AGENTS [None]
  - ACIDOSIS [None]
  - HYPERLIPIDAEMIA [None]
  - HYPOTHYROIDISM [None]
  - ELECTROCARDIOGRAM ST SEGMENT DEPRESSION [None]
  - TOBACCO USER [None]
  - LOW DENSITY LIPOPROTEIN [None]
  - ELECTROCARDIOGRAM T WAVE INVERSION [None]
  - STRESS [None]
  - ATRIOVENTRICULAR BLOCK [None]
  - BRADYCARDIA [None]
  - ISCHAEMIA [None]
  - TACHYARRHYTHMIA [None]
  - WOLFF-PARKINSON-WHITE SYNDROME [None]
